FAERS Safety Report 16508725 (Version 1)
Quarter: 2019Q3

REPORT INFORMATION
  Report Type: Spontaneous
  Country: US (occurrence: US)
  Receive Date: 20190702
  Receipt Date: 20190702
  Transmission Date: 20191004
  Serious: No
  Sender: FDA-Public Use
  Company Number: US-ROCHE-2224977

PATIENT
  Age: 47 Year
  Sex: Female
  Weight: 77.18 kg

DRUGS (8)
  1. EFFEXOR [Concomitant]
     Active Substance: VENLAFAXINE HYDROCHLORIDE
     Indication: HOT FLUSH
  2. XELODA [Suspect]
     Active Substance: CAPECITABINE
     Indication: BREAST CANCER
     Route: 065
     Dates: start: 201812
  3. XELODA [Suspect]
     Active Substance: CAPECITABINE
     Dosage: PILL
     Route: 065
     Dates: start: 20181129, end: 20181212
  4. XELODA [Suspect]
     Active Substance: CAPECITABINE
     Dosage: PILL
     Route: 065
     Dates: start: 20190101
  5. EFFEXOR [Concomitant]
     Active Substance: VENLAFAXINE HYDROCHLORIDE
     Indication: DEPRESSION
     Route: 065
     Dates: start: 201810
  6. FAMCICLOVIR. [Concomitant]
     Active Substance: FAMCICLOVIR
     Indication: HERPES VIRUS INFECTION
     Route: 065
  7. XELODA [Suspect]
     Active Substance: CAPECITABINE
     Route: 065
     Dates: start: 20190121
  8. PROCHLORPERAZINE. [Concomitant]
     Active Substance: PROCHLORPERAZINE
     Indication: NAUSEA
     Dosage: PRN
     Route: 048

REACTIONS (6)
  - Mucosal inflammation [Recovering/Resolving]
  - Dehydration [Recovered/Resolved]
  - Headache [Unknown]
  - Diarrhoea [Recovering/Resolving]
  - Vomiting [Recovered/Resolved]
  - Chest pain [Recovered/Resolved]

NARRATIVE: CASE EVENT DATE: 201812
